FAERS Safety Report 6601330-5 (Version None)
Quarter: 2010Q1

REPORT INFORMATION
  Report Type: 
  Country: None (occurrence: None)
  Receive Date: 20100225
  Receipt Date: 20100215
  Transmission Date: 20100710
  Serious: Yes (Other)
  Sender: FDA-Public Use
  Company Number: US-SANOFI-AVENTIS-2010SA009162

PATIENT
  Age: 81 Year
  Sex: Female

DRUGS (4)
  1. MULTAQ [Suspect]
     Indication: ATRIAL FIBRILLATION
     Route: 048
     Dates: start: 20100101
  2. ATENOLOL [Suspect]
     Route: 048
  3. WARFARIN SODIUM [Concomitant]
  4. DILTIAZEM HCL [Concomitant]
     Route: 048

REACTIONS (9)
  - ASTHENIA [None]
  - ATRIAL FIBRILLATION [None]
  - DRUG INTERACTION [None]
  - DYSPNOEA [None]
  - FATIGUE [None]
  - HEART RATE INCREASED [None]
  - NON-CARDIAC CHEST PAIN [None]
  - WEIGHT FLUCTUATION [None]
  - WHEEZING [None]
